FAERS Safety Report 4814883-4 (Version None)
Quarter: 2005Q4

REPORT INFORMATION
  Report Type: 
  Country: None (occurrence: None)
  Receive Date: 20051027
  Receipt Date: 20051027
  Transmission Date: 20060501
  Serious: Yes (Other)
  Sender: FDA-Public Use
  Company Number: None

PATIENT
  Age: 44 Year
  Sex: Male

DRUGS (17)
  1. TIPRANAVIR [Suspect]
     Indication: HIV INFECTION
     Dosage: 500 MG BID PO
     Route: 048
     Dates: start: 20050920, end: 20051008
  2. NORVIR [Suspect]
     Indication: HIV INFECTION
     Dosage: 200 MG BID PO
     Route: 048
     Dates: start: 20050920, end: 20051008
  3. EPZICOM [Suspect]
     Indication: HIV INFECTION
     Dosage: 1 TAB QD PO
     Route: 048
     Dates: start: 20050920, end: 20051008
  4. VIDEX EC [Suspect]
     Indication: HIV INFECTION
     Dosage: 400MG QD PO
     Route: 048
     Dates: start: 20050920, end: 20051008
  5. ALLEGRA [Concomitant]
  6. AMBIEN [Concomitant]
  7. ASPIRIN [Concomitant]
  8. BENADRYL [Concomitant]
  9. CORAL CALCIUM [Concomitant]
  10. LIPITOR [Concomitant]
  11. LORTAB [Concomitant]
  12. MULTI-VITAMIN [Concomitant]
  13. TYLENOL (CAPLET) [Concomitant]
  14. VITAMIN B COMPLEX CAP [Concomitant]
  15. VITAMIN B6 [Concomitant]
  16. ASCORBIC ACID [Concomitant]
  17. XANAX [Concomitant]

REACTIONS (1)
  - ELECTROCARDIOGRAM QT CORRECTED INTERVAL PROLONGED [None]
